FAERS Safety Report 7809643-6 (Version None)
Quarter: 2011Q4

REPORT INFORMATION
  Report Type: 
  Country: None (occurrence: None)
  Receive Date: 20111012
  Receipt Date: 20111006
  Transmission Date: 20120403
  Serious: Yes (Hospitalization, Other)
  Sender: FDA-Public Use
  Company Number: US-BRISTOL-MYERS SQUIBB COMPANY-13801246

PATIENT
  Age: 74 Year
  Sex: Female
  Weight: 59 kg

DRUGS (11)
  1. KYTRIL [Concomitant]
  2. HYDROCORTISONE [Concomitant]
  3. LORAZEPAM [Concomitant]
  4. ALOXI [Concomitant]
  5. DECADRON [Concomitant]
  6. DURAGESIC-100 [Concomitant]
  7. REGLAN [Concomitant]
  8. ERBITUX [Suspect]
     Indication: LARYNGEAL CANCER
     Dosage: LAST ADMINISTERED DATE 29 MAY 2007
     Route: 042
     Dates: start: 20070430, end: 20070529
  9. CISPLATIN [Suspect]
     Indication: LARYNGEAL CANCER
     Dosage: LAST ADMINISTERED ON 29 MAY 2007
     Route: 042
     Dates: start: 20070430, end: 20070529
  10. PERCOCET [Concomitant]
  11. BENADRYL [Concomitant]

REACTIONS (18)
  - NAUSEA [None]
  - BLOOD SODIUM DECREASED [None]
  - DYSGEUSIA [None]
  - BLOOD CALCIUM DECREASED [None]
  - DEHYDRATION [None]
  - BLOOD POTASSIUM DECREASED [None]
  - FATIGUE [None]
  - DYSPHAGIA [None]
  - OESOPHAGITIS [None]
  - DRY MOUTH [None]
  - WHITE BLOOD CELL COUNT DECREASED [None]
  - HAEMOGLOBIN DECREASED [None]
  - STOMATITIS [None]
  - OESOPHAGEAL PAIN [None]
  - VOMITING [None]
  - DYSARTHRIA [None]
  - SALIVARY GLAND DISORDER [None]
  - BLOOD ALBUMIN DECREASED [None]
